FAERS Safety Report 9635419 (Version 1)
Quarter: 2013Q4

REPORT INFORMATION
  Report Type: Spontaneous
  Country: US (occurrence: US)
  Receive Date: 20131021
  Receipt Date: 20131021
  Transmission Date: 20140711
  Serious: Yes (Death, Other)
  Sender: FDA-Public Use
  Company Number: US-JNJFOC-20131009516

PATIENT
  Age: 31 Year
  Sex: Male
  Weight: 99.79 kg

DRUGS (2)
  1. XARELTO [Suspect]
     Indication: DEEP VEIN THROMBOSIS
     Route: 048
     Dates: start: 2013
  2. ARMOUR THYROID [Concomitant]
     Indication: THYROID DISORDER
     Route: 048

REACTIONS (9)
  - Completed suicide [Fatal]
  - Fall [Unknown]
  - Ankle fracture [Unknown]
  - Feeling abnormal [Unknown]
  - Incorrect dose administered [Unknown]
  - Appetite disorder [Unknown]
  - Malaise [Unknown]
  - Scratch [Unknown]
  - Haemorrhage [Unknown]
